FAERS Safety Report 9708218 (Version 1)
Quarter: 2013Q4

REPORT INFORMATION
  Report Type: Spontaneous
  Country: US (occurrence: None)
  Receive Date: 20131121
  Receipt Date: 20131121
  Transmission Date: 20140711
  Serious: Yes (Hospitalization)
  Sender: FDA-Public Use
  Company Number: FK201305049

PATIENT
  Sex: 0

DRUGS (1)
  1. PACLITAXEL [Suspect]
     Indication: PRODUCT USED FOR UNKNOWN INDICATION

REACTIONS (6)
  - Chills [None]
  - Chest pain [None]
  - Feeling abnormal [None]
  - Hemiparesis [None]
  - Hypoaesthesia [None]
  - Liquid product physical issue [None]
